FAERS Safety Report 4503826-9 (Version None)
Quarter: 2004Q4

REPORT INFORMATION
  Report Type: 
  Country: None (occurrence: None)
  Receive Date: 20041117
  Receipt Date: 20041108
  Transmission Date: 20050328
  Serious: Yes (Hospitalization, Disabling)
  Sender: FDA-Public Use
  Company Number: US-MERCK-0411USA01168

PATIENT
  Age: 57 Year
  Sex: Female

DRUGS (3)
  1. VIOXX [Suspect]
     Indication: ARTHRITIS
     Route: 048
     Dates: start: 20000101, end: 20030101
  2. SYNTHROID [Concomitant]
     Route: 065
  3. PROZAC [Concomitant]
     Route: 065

REACTIONS (3)
  - CHEST PAIN [None]
  - INSOMNIA [None]
  - THROMBOSIS [None]
